FAERS Safety Report 4717767-5 (Version None)
Quarter: 2005Q3

REPORT INFORMATION
  Report Type: 
  Country: None (occurrence: None)
  Receive Date: 20050718
  Receipt Date: 20050718
  Transmission Date: 20060218
  Serious: Yes (Death)
  Sender: FDA-Public Use
  Company Number: None

PATIENT
  Age: 64 Year
  Sex: Male
  Weight: 77.1115 kg

DRUGS (5)
  1. VELCADE [Suspect]
     Indication: NON-SMALL CELL LUNG CANCER
     Dosage: 1.75-1.4 MG PER PROTOCOL
     Dates: start: 20040827, end: 20050505
  2. TARCEVA [Suspect]
     Indication: NON-SMALL CELL LUNG CANCER
     Dosage: 150 MG PO DAILY
     Route: 048
     Dates: start: 20050610, end: 20050629
  3. DECADRON [Concomitant]
  4. METROPROLOL SUCCINATE [Concomitant]
  5. ZESTORETIC [Concomitant]

REACTIONS (4)
  - DISEASE PROGRESSION [None]
  - HAEMOPTYSIS [None]
  - METASTASES TO CENTRAL NERVOUS SYSTEM [None]
  - THROMBOTIC THROMBOCYTOPENIC PURPURA [None]
